FAERS Safety Report 6640709-2 (Version None)
Quarter: 2010Q1

REPORT INFORMATION
  Report Type: 
  Country: None (occurrence: None)
  Receive Date: 20100318
  Receipt Date: 20100305
  Transmission Date: 20100710
  Serious: Yes (Hospitalization, Other)
  Sender: FDA-Public Use
  Company Number: US-ELI_LILLY_AND_COMPANY-US201003002105

PATIENT
  Sex: Female

DRUGS (3)
  1. HUMATROPE [Suspect]
     Dosage: 0.2 MG, DAILY (1/D)
     Dates: start: 20070227, end: 20070101
  2. HUMATROPE [Suspect]
     Dosage: 3 MG, DAILY (1/D)
     Dates: start: 20070626
  3. CORTICOSTEROID NOS [Concomitant]
     Indication: MULTIPLE SCLEROSIS
     Dates: start: 20070101

REACTIONS (18)
  - ANKLE FRACTURE [None]
  - BALANCE DISORDER [None]
  - COGNITIVE DISORDER [None]
  - DEHYDRATION [None]
  - FALL [None]
  - FRUSTRATION [None]
  - HALLUCINATION [None]
  - HEAD INJURY [None]
  - MALAISE [None]
  - MEMORY IMPAIRMENT [None]
  - MULTIPLE SCLEROSIS [None]
  - NEUROPATHY PERIPHERAL [None]
  - PNEUMONIA [None]
  - PYREXIA [None]
  - TREMOR [None]
  - VIRAL INFECTION [None]
  - VOMITING [None]
  - WEIGHT INCREASED [None]
